FAERS Safety Report 6944588-5 (Version None)
Quarter: 2010Q3

REPORT INFORMATION
  Report Type: 
  Country: None (occurrence: None)
  Receive Date: 20100827
  Receipt Date: 20100817
  Transmission Date: 20110219
  Serious: Yes (Other)
  Sender: FDA-Public Use
  Company Number: US-PFIZER INC-2010073722

PATIENT
  Sex: Male
  Weight: 80.7 kg

DRUGS (14)
  1. LYRICA [Suspect]
     Indication: HERPES ZOSTER
     Dosage: 75 MG, 2X/DAY
     Route: 048
     Dates: start: 20100323
  2. LYRICA [Suspect]
     Indication: DIABETIC NEUROPATHY
  3. LASIX [Concomitant]
     Dosage: 20 MG, 2 TABLETS EVERY MORNING AND 1 TABLET AS NEEDED
  4. HYDRALAZINE [Concomitant]
     Dosage: 10 MG, 3X/DAY
  5. ISOSORBIDE [Concomitant]
     Indication: CARDIOVASCULAR DISORDER
     Dosage: 60 MG, 2X/DAY
  6. LISINOPRIL [Concomitant]
     Dosage: 10 MG, 2 TABLETS EVERY MORNING AND 2 TABLETS AT BEDTIME
  7. ATIVAN [Concomitant]
     Dosage: 1 MG, 4X/DAY
  8. CALCITRIOL [Concomitant]
     Dosage: 0.25 UG, 2 CAPSULES MON, WED, FRI AND 1 CAPSULE ALL OTHER DAYS
  9. LIDODERM [Concomitant]
     Dosage: APPLY 1 PATICH EVERY 12 HOURS AS NEEDED
     Route: 061
  10. LEXAPRO [Concomitant]
     Dosage: 5 MG, 1X/DAY
     Route: 048
  11. NPH INSULIN [Concomitant]
     Dosage: 10 IU, AT BEDTIME
     Route: 058
  12. NOVOLIN R [Concomitant]
     Dosage: UNK
  13. VITAMIN D [Concomitant]
     Dosage: 2000 MG, 1X/DAY
     Route: 048
  14. COLCHICINE [Concomitant]
     Indication: GOUT
     Dosage: 0.6 MG, AS NEEDED FOR GOUT ATTACK
     Route: 048

REACTIONS (8)
  - ABDOMINAL PAIN [None]
  - ASTHENIA [None]
  - FATIGUE [None]
  - FEELING ABNORMAL [None]
  - OEDEMA PERIPHERAL [None]
  - SOMNOLENCE [None]
  - WEIGHT INCREASED [None]
  - WITHDRAWAL SYNDROME [None]
